FAERS Safety Report 6510184-7 (Version None)
Quarter: 2009Q4

REPORT INFORMATION
  Report Type: 
  Country: None (occurrence: None)
  Receive Date: 20091222
  Receipt Date: 20091215
  Transmission Date: 20100525
  Serious: Yes (Other)
  Sender: FDA-Public Use
  Company Number: GXKR2009JP12841

PATIENT
  Sex: Male

DRUGS (6)
  1. ESANBUTOL (NGX) [Suspect]
     Indication: MYCOBACTERIAL INFECTION
     Dosage: 750 MG, QD
     Route: 048
     Dates: start: 20080806, end: 20091014
  2. RIFAMPICIN [Suspect]
     Indication: MYCOBACTERIAL INFECTION
     Dosage: 450 MG
     Route: 048
     Dates: start: 20080806, end: 20091125
  3. MUCOSOLVAN [Concomitant]
     Dosage: 15 MG, TID
     Route: 048
     Dates: start: 20090906
  4. TOCLASE [Concomitant]
     Dosage: 90 MG, QD
     Route: 048
     Dates: start: 20090220
  5. GASTER D [Concomitant]
     Dosage: 20 MG, QD
     Route: 048
     Dates: start: 20090906
  6. CLARITH [Concomitant]
     Dosage: 400 MG, QD
     Route: 048
     Dates: start: 20090906

REACTIONS (1)
  - OPTIC NERVE DISORDER [None]
